FAERS Safety Report 5281360-9 (Version None)
Quarter: 2007Q1

REPORT INFORMATION
  Report Type: 
  Country: None (occurrence: None)
  Receive Date: 20070323
  Receipt Date: 20070323
  Transmission Date: 20070707
  Serious: Yes (Other)
  Sender: FDA-Public Use
  Company Number: None

PATIENT
  Sex: Male
  Weight: 18.1439 kg

DRUGS (1)
  1. TAMIFLU [Suspect]

REACTIONS (2)
  - HALLUCINATION [None]
  - VISUAL DISTURBANCE [None]
